FAERS Safety Report 8024164-6 (Version None)
Quarter: 2012Q1

REPORT INFORMATION
  Report Type: 
  Country: None (occurrence: None)
  Receive Date: 20120105
  Receipt Date: 20111229
  Transmission Date: 20120608
  Serious: Yes (Death)
  Sender: FDA-Public Use
  Company Number: US-PFIZER INC-2011308670

PATIENT
  Age: 77 Year
  Sex: Male

DRUGS (3)
  1. HYDROXYZINE [Suspect]
     Dosage: UNK
     Route: 048
  2. TEMAZEPAM [Suspect]
     Dosage: UNK
     Route: 048
  3. ESCITALOPRAM OXALATE [Suspect]
     Dosage: UNK
     Route: 048

REACTIONS (2)
  - TOXICITY TO VARIOUS AGENTS [None]
  - COMPLETED SUICIDE [None]
